FAERS Safety Report 25135656 (Version 1)
Quarter: 2025Q1

REPORT INFORMATION
  Report Type: Spontaneous
  Country: US (occurrence: None)
  Receive Date: 20250328
  Receipt Date: 20250328
  Transmission Date: 20250409
  Serious: No
  Sender: FDA-CTU
  Company Number: None

PATIENT
  Age: 83 Year
  Sex: Male

DRUGS (1)
  1. ONDANSETRON [Suspect]
     Active Substance: ONDANSETRON
     Indication: Hepatocellular carcinoma
     Dosage: FREQUENCY : 3 TIMES A DAY;?
     Route: 060
     Dates: start: 20250121, end: 20250320

REACTIONS (1)
  - Death [None]

NARRATIVE: CASE EVENT DATE: 20250321
